FAERS Safety Report 23143382 (Version 1)
Quarter: 2023Q4

REPORT INFORMATION
  Report Type: Spontaneous
  Country: US (occurrence: US)
  Receive Date: 20231103
  Receipt Date: 20231103
  Transmission Date: 20240110
  Serious: No
  Sender: FDA-Public Use
  Company Number: US-MYOVANT SCIENCES GMBH-2023MYSCI0800085

PATIENT
  Age: 80 Year
  Sex: Male

DRUGS (11)
  1. ORGOVYX [Suspect]
     Active Substance: RELUGOLIX
     Indication: Prostate cancer
     Dosage: UNK, QD
     Route: 065
     Dates: end: 20230728
  2. TAMSULOSIN [Concomitant]
     Active Substance: TAMSULOSIN
     Indication: Prostate cancer
     Dosage: 0.4 MILLIGRAM, BID
     Route: 065
     Dates: start: 202304
  3. DUTASTERIDE [Concomitant]
     Active Substance: DUTASTERIDE
     Indication: Prostate cancer
     Dosage: UNK, QD
     Route: 065
  4. ATORVASTATIN [Concomitant]
     Active Substance: ATORVASTATIN
     Indication: Product used for unknown indication
     Dosage: 40 MILLIGRAM, QD
     Route: 065
  5. NITROFURANTOIN [Concomitant]
     Active Substance: NITROFURANTOIN
     Indication: Antibiotic therapy
     Dosage: 50 MILLIGRAM, QD
     Route: 065
  6. HYDRALAZINE [Concomitant]
     Active Substance: HYDRALAZINE HYDROCHLORIDE
     Indication: Hypertension
     Dosage: 50 MILLIGRAM, BID
     Route: 065
  7. CARVEDILOL [Concomitant]
     Active Substance: CARVEDILOL
     Indication: Hypertension
     Dosage: 3.125 MILLIGRAM, BID
     Route: 065
  8. METFORMIN HYDROCHLORIDE [Concomitant]
     Active Substance: METFORMIN HYDROCHLORIDE
     Indication: Diabetes mellitus
     Dosage: 500 MILLIGRAM, Q6H
     Route: 065
  9. MINERALS\VITAMINS [Concomitant]
     Active Substance: MINERALS\VITAMINS
     Indication: Prophylaxis
     Dosage: UNK, BID
     Route: 065
     Dates: start: 2012
  10. CENTRUM SILVER                     /02363801/ [Concomitant]
     Indication: Product used for unknown indication
     Dosage: 1 TAB, QD
     Route: 065
  11. PROBIOTICS NOS [Concomitant]
     Active Substance: PROBIOTICS NOS
     Indication: Product used for unknown indication
     Dosage: 1 UNK, QD
     Route: 065

REACTIONS (7)
  - Decreased appetite [Unknown]
  - Depression [Unknown]
  - Diarrhoea [Unknown]
  - Fatigue [Unknown]
  - Gastrooesophageal reflux disease [Unknown]
  - Urinary retention [Unknown]
  - Therapy interrupted [Unknown]

NARRATIVE: CASE EVENT DATE: 20230729
